FAERS Safety Report 12465623 (Version 2)
Quarter: 2016Q2

REPORT INFORMATION
  Report Type: Spontaneous
  Country: PT (occurrence: PT)
  Receive Date: 20160614
  Receipt Date: 20160614
  Transmission Date: 20160815
  Serious: Yes (Hospitalization)
  Sender: FDA-Public Use
  Company Number: PT-ACTAVIS-2016-12258

PATIENT
  Age: 14 Year
  Sex: Female

DRUGS (3)
  1. CARBAMAZEPINE (UNKNOWN) [Suspect]
     Active Substance: CARBAMAZEPINE
     Indication: EPILEPSY
     Dosage: 45 MG/KG, DAILY
     Route: 065
  2. PREGABALIN (UNKNOWN) [Suspect]
     Active Substance: PREGABALIN
     Indication: EPILEPSY
     Dosage: 8 MG/KG, DAILY
     Route: 065
  3. LAMOTRIGINE (UNKNOWN) [Suspect]
     Active Substance: LAMOTRIGINE
     Indication: EPILEPSY
     Dosage: 8 MG/KG, DAILY
     Route: 065

REACTIONS (3)
  - Agitation [Unknown]
  - Seizure [Unknown]
  - Anxiety [Unknown]
